FAERS Safety Report 18130560 (Version 1)
Quarter: 2020Q3

REPORT INFORMATION
  Report Type: Spontaneous
  Country: FR (occurrence: FR)
  Receive Date: 20200810
  Receipt Date: 20200810
  Transmission Date: 20201103
  Serious: Yes (Hospitalization)
  Sender: FDA-Public Use
  Company Number: FR-ALVOGEN-2020-ALVOGEN-113826

PATIENT
  Age: 30 Year
  Sex: Female

DRUGS (3)
  1. MORPHINE [Suspect]
     Active Substance: MORPHINE
     Indication: PROCEDURAL PAIN
     Route: 048
  2. NEFOPAM [Suspect]
     Active Substance: NEFOPAM
     Indication: PROCEDURAL PAIN
     Route: 042
  3. OXYCODONE [Suspect]
     Active Substance: OXYCODONE
     Indication: PROCEDURAL PAIN
     Dosage: 5 MG 4 TIMES A DAY
     Route: 042

REACTIONS (2)
  - Premature labour [Unknown]
  - Exposure during pregnancy [Unknown]
